FAERS Safety Report 6572251-1 (Version None)
Quarter: 2010Q1

REPORT INFORMATION
  Report Type: 
  Country: None (occurrence: None)
  Receive Date: 20100205
  Receipt Date: 20100201
  Transmission Date: 20100710
  Serious: Yes (Other)
  Sender: FDA-Public Use
  Company Number: PHEH2010US01510

PATIENT
  Sex: Female
  Weight: 68.934 kg

DRUGS (4)
  1. EXJADE [Suspect]
     Indication: MYELODYSPLASTIC SYNDROME
     Dosage: 500 MG, TID
     Route: 048
     Dates: start: 20081021
  2. EXJADE [Suspect]
     Indication: SERUM FERRITIN INCREASED
  3. LASIX [Concomitant]
  4. PERCOCET [Concomitant]

REACTIONS (17)
  - ASTHENIA [None]
  - BREATH SOUNDS ABNORMAL [None]
  - DECREASED APPETITE [None]
  - DYSGEUSIA [None]
  - DYSPNOEA EXERTIONAL [None]
  - EOSINOPHIL PERCENTAGE INCREASED [None]
  - FATIGUE [None]
  - MONOCYTE PERCENTAGE INCREASED [None]
  - MYELODYSPLASTIC SYNDROME [None]
  - NEUTROPENIA [None]
  - OEDEMA PERIPHERAL [None]
  - PANCYTOPENIA [None]
  - RHONCHI [None]
  - SERUM FERRITIN INCREASED [None]
  - SKIN CANCER [None]
  - SOMNOLENCE [None]
  - THROMBOCYTOPENIA [None]
